FAERS Safety Report 6709917-6 (Version None)
Quarter: 2010Q2

REPORT INFORMATION
  Report Type: 
  Country: None (occurrence: None)
  Receive Date: 20100503
  Receipt Date: 20100503
  Transmission Date: 20101027
  Serious: Yes (Hospitalization)
  Sender: FDA-Public Use
  Company Number: None

PATIENT
  Age: 15 Month
  Sex: Male
  Weight: 12.2471 kg

DRUGS (1)
  1. TYLENOL (CAPLET) [Suspect]
     Indication: TEETHING
     Dosage: 1 DROP ONCE PO
     Route: 048
     Dates: start: 20100501, end: 20100501

REACTIONS (7)
  - ASTHMA [None]
  - DROOLING [None]
  - MALAISE [None]
  - NASOPHARYNGITIS [None]
  - PRODUCT QUALITY ISSUE [None]
  - RESPIRATORY DISTRESS [None]
  - VOMITING [None]
